FAERS Safety Report 6201755-6 (Version None)
Quarter: 2009Q2

REPORT INFORMATION
  Report Type: 
  Country: None (occurrence: None)
  Receive Date: 20090526
  Receipt Date: 20081120
  Transmission Date: 20091009
  Serious: No
  Sender: FDA-Public Use
  Company Number: US-BRISTOL-MYERS SQUIBB COMPANY-13743075

PATIENT
  Age: 32 Year
  Sex: Female
  Weight: 116 kg

DRUGS (2)
  1. BARACLUDE [Suspect]
     Indication: HEPATITIS B
     Route: 048
     Dates: start: 20060102
  2. VITAMIN TAB [Concomitant]

REACTIONS (2)
  - NORMAL NEWBORN [None]
  - PREGNANCY [None]
